FAERS Safety Report 23566430 (Version 1)
Quarter: 2024Q1

REPORT INFORMATION
  Report Type: Spontaneous
  Country: US (occurrence: US)
  Receive Date: 20240226
  Receipt Date: 20240226
  Transmission Date: 20240410
  Serious: No
  Sender: FDA-Public Use
  Company Number: US-AMNEAL PHARMACEUTICALS-2022-AMRX-04296

PATIENT
  Sex: Female

DRUGS (11)
  1. RYTARY [Suspect]
     Active Substance: CARBIDOPA\LEVODOPA
     Indication: Product used for unknown indication
     Dosage: 48.75-195 MG, 1 CAPSULES, 4 /DAY
     Route: 048
     Dates: start: 2023
  2. RYTARY [Suspect]
     Active Substance: CARBIDOPA\LEVODOPA
     Dosage: 48.75-195 MG, 1 CAP AT 7 AM, 2 CAPS AT 11 AM, 2 CAP AT 4 PM AND 1 CAP AT 10 PM
     Route: 048
     Dates: start: 20230614
  3. RYTARY [Suspect]
     Active Substance: CARBIDOPA\LEVODOPA
     Dosage: 48.75-195 MG, 8 CAPSULES, QD (1 CAP AT 7 AM, 1 CAPS AT 11 AM, 1 CAP AT 4 PM AND 1 CAP AT 10 PM)
     Route: 048
  4. RYTARY [Suspect]
     Active Substance: CARBIDOPA\LEVODOPA
     Dosage: RYTARY 48.75-195 MG TAKE 2 CAPSULES BY MOUTH 5 TIMES PER DAY ALONG WITH23.75-95 MG TAKE 1 CAPSULE BY
     Route: 048
     Dates: start: 20231009
  5. RYTARY [Suspect]
     Active Substance: CARBIDOPA\LEVODOPA
     Dosage: 6AM 2 CAPSULES 48.75/195, 1 OF CAPSULE 23.75/95  9 AM 1 CAPSULE OF23.75/95 2 CAPSULE 48.75/195  11 A
     Route: 048
  6. RYTARY [Suspect]
     Active Substance: CARBIDOPA\LEVODOPA
     Dosage: 23.75-95 MG + 48.75-195 MG CAPSULES, TAKE 1 CAPSULE FIVE TIMES A DAY AT THE SAME TIME WITH 48.75-195
     Route: 048
  7. RYTARY [Suspect]
     Active Substance: CARBIDOPA\LEVODOPA
     Dosage: 23.75-95 MG TAKE 1 CAPSULE TWICE DAILY AND RYATRY 61.25-245 MG TAKE 1 CAPSULE 6 TIMES A DAY.
     Route: 048
     Dates: start: 20240130
  8. GABAPENTIN [Concomitant]
     Active Substance: GABAPENTIN
     Indication: Anxiety
     Dosage: 100 MILLIGRAM,2 CAPSULES 5 TIMES A DAY
     Route: 065
     Dates: start: 202212
  9. GABAPENTIN [Concomitant]
     Active Substance: GABAPENTIN
     Indication: Parkinson^s disease
  10. ESCITALOPRAM [Concomitant]
     Active Substance: ESCITALOPRAM OXALATE
     Indication: Anxiety
     Dosage: 20 MILLIGRAM,1 TIME A DAY IN THE MORNING
     Route: 065
     Dates: start: 202212
  11. BUPROPION [Concomitant]
     Active Substance: BUPROPION
     Indication: Anxiety
     Dosage: 150 MILLIGRAM, QD
     Route: 065
     Dates: start: 202311

REACTIONS (9)
  - Tinnitus [Not Recovered/Not Resolved]
  - Abdominal pain upper [Not Recovered/Not Resolved]
  - Tremor [Not Recovered/Not Resolved]
  - Gait disturbance [Not Recovered/Not Resolved]
  - Dyspnoea [Not Recovered/Not Resolved]
  - Musculoskeletal stiffness [Not Recovered/Not Resolved]
  - Pruritus [Unknown]
  - Therapeutic product effect variable [Unknown]
  - Anxiety [Not Recovered/Not Resolved]

NARRATIVE: CASE EVENT DATE: 20230101
